FAERS Safety Report 7561585-X (Version None)
Quarter: 2011Q2

REPORT INFORMATION
  Report Type: 
  Country: None (occurrence: None)
  Receive Date: 20110621
  Receipt Date: 20100527
  Transmission Date: 20111010
  Serious: No
  Sender: FDA-Public Use
  Company Number: US-ASTRAZENECA-2010SE24651

PATIENT
  Age: 79 Year
  Sex: Female

DRUGS (4)
  1. NEXIUM [Suspect]
     Indication: GASTROOESOPHAGEAL REFLUX DISEASE
     Route: 048
     Dates: start: 20070101
  2. PREDNISONE TAB [Concomitant]
  3. PULMICORT FLEXHALER [Suspect]
     Indication: PULMONARY FIBROSIS
     Dosage: BID, TOTAL DAILY DOSAGE: 180 MCG
     Route: 055
  4. NEXIUM [Suspect]
     Route: 048
     Dates: start: 20100101

REACTIONS (5)
  - INCORRECT DOSE ADMINISTERED [None]
  - PNEUMONIA [None]
  - PNEUMONITIS [None]
  - GASTROOESOPHAGEAL REFLUX DISEASE [None]
  - DRUG INEFFECTIVE [None]
